FAERS Safety Report 8240023-8 (Version None)
Quarter: 2012Q1

REPORT INFORMATION
  Report Type: 
  Country: None (occurrence: None)
  Receive Date: 20120328
  Receipt Date: 20120316
  Transmission Date: 20120608
  Serious: Yes (Hospitalization)
  Sender: FDA-Public Use
  Company Number: CA-NOVOPROD-344705

PATIENT
  Age: 45 Year
  Sex: Male
  Weight: 115.6 kg

DRUGS (2)
  1. LIRAGLUTIDE FLEXPEN [Suspect]
     Indication: OBESITY
     Dosage: 0.6MG, QD
     Route: 058
     Dates: start: 20110725
  2. LIRAGLUTIDE FLEXPEN [Suspect]
     Dosage: 3.0 MG, QD
     Route: 058
     Dates: start: 20110822

REACTIONS (1)
  - CHOLECYSTITIS ACUTE [None]
